FAERS Safety Report 17888652 (Version 1)
Quarter: 2020Q2

REPORT INFORMATION
  Report Type: Spontaneous
  Country: US (occurrence: US)
  Receive Date: 20200611
  Receipt Date: 20200611
  Transmission Date: 20200714
  Serious: Yes (Hospitalization)
  Sender: FDA-Public Use
  Company Number: None

PATIENT
  Age: 86 Year
  Sex: Female

DRUGS (1)
  1. OCTREOTIDE. [Suspect]
     Active Substance: OCTREOTIDE
     Indication: SMALL INTESTINE CARCINOMA
     Dosage: ?          OTHER FREQUENCY:3-4 TIMES A DAY;?
     Route: 058
     Dates: start: 20190429

REACTIONS (2)
  - Blood potassium decreased [None]
  - Blood sodium decreased [None]

NARRATIVE: CASE EVENT DATE: 20200606
